FAERS Safety Report 11047253 (Version 3)
Quarter: 2015Q2

REPORT INFORMATION
  Report Type: Spontaneous
  Country: US (occurrence: US)
  Receive Date: 20150420
  Receipt Date: 20150430
  Transmission Date: 20150821
  Serious: No
  Sender: FDA-Public Use
  Company Number: US-AMGEN-USASL2015036877

PATIENT
  Age: 89 Year
  Sex: Female

DRUGS (1)
  1. ENBREL [Suspect]
     Active Substance: ETANERCEPT
     Indication: PSORIATIC ARTHROPATHY
     Dosage: 50 MG, QWK
     Route: 065
     Dates: start: 20150407, end: 201504

REACTIONS (14)
  - Aphasia [Not Recovered/Not Resolved]
  - Contusion [Not Recovered/Not Resolved]
  - Muscle twitching [Not Recovered/Not Resolved]
  - Memory impairment [Not Recovered/Not Resolved]
  - Injection site erythema [Not Recovered/Not Resolved]
  - Asthenia [Not Recovered/Not Resolved]
  - Limb discomfort [Recovered/Resolved]
  - Injection site pain [Recovered/Resolved]
  - Injection site swelling [Not Recovered/Not Resolved]
  - Erythema [Not Recovered/Not Resolved]
  - Dyskinesia [Recovered/Resolved]
  - Dizziness [Recovered/Resolved]
  - Injection site reaction [Not Recovered/Not Resolved]
  - Speech disorder [Recovered/Resolved]

NARRATIVE: CASE EVENT DATE: 201504
